FAERS Safety Report 7494734-2 (Version None)
Quarter: 2011Q2

REPORT INFORMATION
  Report Type: 
  Country: None (occurrence: None)
  Receive Date: 20110520
  Receipt Date: 20110516
  Transmission Date: 20111010
  Serious: Yes (Hospitalization, Other)
  Sender: FDA-Public Use
  Company Number: DE-GENZYME-CAMP-1001059

PATIENT
  Sex: Male
  Weight: 88 kg

DRUGS (8)
  1. CAMPATH [Suspect]
     Indication: CHRONIC LYMPHOCYTIC LEUKAEMIA
     Dosage: 30 MG, TIW
     Route: 042
     Dates: start: 20100115, end: 20100415
  2. SELENASE [Concomitant]
     Indication: SUPPORTIVE CARE
     Dosage: 1 AMPULE,  UNK
     Route: 048
     Dates: start: 20070101
  3. FRAXIPARIN [Suspect]
     Indication: PRODUCT USED FOR UNKNOWN INDICATION
     Dosage: 0.6 UNK, QD
     Route: 065
  4. ACYCLOVIR [Concomitant]
     Indication: PRODUCT USED FOR UNKNOWN INDICATION
     Dosage: 400 MG, QID
     Route: 065
  5. CAMPATH [Suspect]
     Dosage: UNK
     Route: 065
     Dates: start: 20100101, end: 20100401
  6. FERROUS SULFATE TAB [Concomitant]
     Indication: PRODUCT USED FOR UNKNOWN INDICATION
     Dosage: UNK
     Route: 065
     Dates: end: 20100905
  7. SYMBION [Concomitant]
     Indication: SUPPORTIVE CARE
     Dosage: 1 CAPSULE, UNK
     Route: 065
     Dates: start: 20070101
  8. INNOHEP [Concomitant]
     Indication: THROMBOSIS
     Dosage: 0.8 ML, QD
     Route: 058
     Dates: start: 20100801

REACTIONS (8)
  - INFUSION SITE INFECTION [None]
  - FATIGUE [None]
  - CARDIAC FAILURE [None]
  - PSEUDOMONAL SEPSIS [None]
  - WARM TYPE HAEMOLYTIC ANAEMIA [None]
  - DEEP VEIN THROMBOSIS [None]
  - ANAEMIA HAEMOLYTIC AUTOIMMUNE [None]
  - DYSPNOEA [None]
